FAERS Safety Report 6086651-X (Version None)
Quarter: 2009Q1

REPORT INFORMATION
  Report Type: 
  Country: None (occurrence: None)
  Receive Date: 20090223
  Receipt Date: 20090212
  Transmission Date: 20090719
  Serious: Yes (Other)
  Sender: FDA-Public Use
  Company Number: IT-AMGEN-US333879

PATIENT
  Sex: Female

DRUGS (5)
  1. ENBREL [Suspect]
     Indication: RHEUMATOID ARTHRITIS
     Route: 058
     Dates: start: 20081002, end: 20081218
  2. METHOTREXATE [Suspect]
     Indication: RHEUMATOID ARTHRITIS
     Route: 030
     Dates: start: 20050101, end: 20081218
  3. ALENDROS [Concomitant]
     Dosage: 70 MG
     Route: 048
     Dates: start: 20030101
  4. MEDROL [Concomitant]
     Dosage: 4 MG
     Route: 048
     Dates: start: 20030101
  5. ACETYLSALICYLIC ACID SRT [Concomitant]
     Dates: start: 20050101

REACTIONS (3)
  - ALANINE AMINOTRANSFERASE INCREASED [None]
  - ASPARTATE AMINOTRANSFERASE [None]
  - GAMMA-GLUTAMYLTRANSFERASE INCREASED [None]
